FAERS Safety Report 25843958 (Version 2)
Quarter: 2025Q4

REPORT INFORMATION
  Report Type: Report from Study
  Country: US (occurrence: None)
  Receive Date: 20250925
  Receipt Date: 20251229
  Transmission Date: 20260117
  Serious: Yes (Hospitalization, Other)
  Sender: UCB
  Company Number: US-UCBSA-2025058540

PATIENT
  Age: 64 Year

DRUGS (1)
  1. CIMZIA [Suspect]
     Active Substance: CERTOLIZUMAB PEGOL
     Indication: Psoriatic arthropathy
     Dosage: 400 MILLIGRAM, EV 4 WEEKS

REACTIONS (8)
  - Knee arthroplasty [Recovering/Resolving]
  - Haemorrhage [Recovering/Resolving]
  - Hypotension [Recovering/Resolving]
  - Renal impairment [Recovering/Resolving]
  - Transfusion [Recovering/Resolving]
  - White blood cell count increased [Recovering/Resolving]
  - Insurance issue [Unknown]
  - Therapy interrupted [Unknown]
